FAERS Safety Report 9614486 (Version 2)
Quarter: 2013Q4

REPORT INFORMATION
  Report Type: Spontaneous
  Country: JP (occurrence: JP)
  Receive Date: 20131011
  Receipt Date: 20131029
  Transmission Date: 20140711
  Serious: Yes (Other)
  Sender: FDA-Public Use
  Company Number: JP-PFIZER INC-2013291978

PATIENT
  Age: 70 Year
  Sex: Female

DRUGS (4)
  1. CELECOX [Suspect]
     Dosage: 200 MG, UNKNOWN/DAILY
     Route: 048
     Dates: start: 20130530
  2. MUCOSTA [Concomitant]
     Dosage: UNK
     Route: 048
     Dates: start: 20130530
  3. LOXONIN [Concomitant]
     Dosage: TAPE
     Dates: start: 20130530
  4. VOLTAREN [Concomitant]
     Dosage: UNK
     Dates: start: 20130530

REACTIONS (1)
  - Eczema [Recovered/Resolved]
